FAERS Safety Report 13570060 (Version 4)
Quarter: 2017Q3

REPORT INFORMATION
  Report Type: Spontaneous
  Country: US (occurrence: US)
  Receive Date: 20170522
  Receipt Date: 20170908
  Transmission Date: 20171127
  Serious: Yes (Other)
  Sender: FDA-Public Use
  Company Number: US-LUNDBECK-DKLU2031173

PATIENT
  Age: 63 Year
  Sex: Female

DRUGS (5)
  1. NORTHERA [Suspect]
     Active Substance: DROXIDOPA
     Route: 048
     Dates: end: 201704
  2. NORTHERA [Suspect]
     Active Substance: DROXIDOPA
     Indication: PRODUCT USED FOR UNKNOWN INDICATION
     Dosage: TITRATION COMPLETE
     Route: 065
     Dates: start: 201603
  3. NORTHERA [Suspect]
     Active Substance: DROXIDOPA
     Route: 065
     Dates: end: 2015
  4. NORTHERA [Suspect]
     Active Substance: DROXIDOPA
     Route: 048
     Dates: end: 201704
  5. NORTHERA [Suspect]
     Active Substance: DROXIDOPA
     Route: 048
     Dates: end: 201704

REACTIONS (18)
  - Anal incontinence [Unknown]
  - Dizziness [Unknown]
  - Urinary incontinence [Unknown]
  - Hypokinesia [Unknown]
  - Joint stiffness [Unknown]
  - Arthritis [Unknown]
  - Blood pressure increased [Unknown]
  - Syncope [Unknown]
  - Seizure [Unknown]
  - Loss of consciousness [Not Recovered/Not Resolved]
  - Urinary tract infection [Unknown]
  - Condition aggravated [Unknown]
  - Speech disorder [Unknown]
  - Hypotension [Unknown]
  - Hallucination, visual [Unknown]
  - Drug dose omission [Unknown]
  - Dementia [Unknown]
  - Gastroenteritis viral [Unknown]

NARRATIVE: CASE EVENT DATE: 20170501
